FAERS Safety Report 13307367 (Version 1)
Quarter: 2017Q1

REPORT INFORMATION
  Report Type: Spontaneous
  Country: US (occurrence: US)
  Receive Date: 20170308
  Receipt Date: 20170308
  Transmission Date: 20170428
  Serious: No
  Sender: FDA-Public Use
  Company Number: US-PERRIGO-16US015778

PATIENT
  Age: 40 Year
  Sex: Male
  Weight: 86.17 kg

DRUGS (2)
  1. NAPROXEN SODIUM. [Suspect]
     Active Substance: NAPROXEN SODIUM
     Indication: TOOTHACHE
     Dosage: 220 MG, EVERY 8 HOURS
     Route: 048
     Dates: start: 20160419, end: 20160429
  2. VALERIAN ROOT                      /01561603/ [Concomitant]
     Active Substance: VALERIAN
     Indication: SUPPLEMENTATION THERAPY
     Dosage: UNK
     Route: 048

REACTIONS (1)
  - Drug ineffective [Unknown]

NARRATIVE: CASE EVENT DATE: 20160419
